FAERS Safety Report 20785868 (Version 1)
Quarter: 2022Q2

REPORT INFORMATION
  Report Type: Spontaneous
  Country: US (occurrence: None)
  Receive Date: 20220504
  Receipt Date: 20220504
  Transmission Date: 20220721
  Serious: No
  Sender: FDA-Public Use
  Company Number: US-ROCHE-2822183

PATIENT
  Sex: Female
  Weight: 78.996 kg

DRUGS (1)
  1. OCREVUS [Suspect]
     Active Substance: OCRELIZUMAB
     Indication: Multiple sclerosis
     Dosage: UNKNOWN
     Route: 042
     Dates: start: 201810

REACTIONS (6)
  - Hypersensitivity [Unknown]
  - Weight increased [Unknown]
  - Gingival bleeding [Unknown]
  - Alopecia [Unknown]
  - Fatigue [Unknown]
  - Immunodeficiency [Unknown]

NARRATIVE: CASE EVENT DATE: 20190101
